FAERS Safety Report 8909027 (Version 1)
Quarter: 2012Q4

REPORT INFORMATION
  Report Type: 
  Country: US (occurrence: US)
  Receive Date: 20121113
  Receipt Date: 20121113
  Transmission Date: 20130627
  Serious: No
  Sender: FDA-Public Use
  Company Number: US-AMGEN-USASP2012011674

PATIENT
  Sex: Female

DRUGS (10)
  1. ENBREL [Suspect]
     Indication: PRODUCT USED FOR UNKNOWN INDICATION
     Dosage: 50 mg, qwk
     Route: 058
  2. AMBIEN [Concomitant]
     Dosage: 5 mg, UNK
  3. PREDNISONE [Concomitant]
     Dosage: 1 mg, UNK
  4. EXCEDRIN                           /00110301/ [Concomitant]
     Indication: MIGRAINE
     Dosage: UNK
  5. ARAVA [Concomitant]
     Dosage: 10 mg, UNK
  6. VITAMIN C                          /00008001/ [Concomitant]
     Dosage: 500 mg, UNK
  7. ZINC [Concomitant]
     Dosage: 30 mg, UNK
  8. ECHINACEA                          /01323501/ [Concomitant]
     Dosage: 125 mg, UNK
  9. TYLENOL ARTHRITIS [Concomitant]
     Dosage: 650 mg, UNK
  10. TYLENOL /00020001/ [Concomitant]
     Dosage: 325 mg, UNK

REACTIONS (2)
  - Injection site erythema [Unknown]
  - Injection site pruritus [Unknown]
